FAERS Safety Report 16932031 (Version 1)
Quarter: 2019Q4

REPORT INFORMATION
  Report Type: Report from Study
  Country: US (occurrence: US)
  Receive Date: 20191017
  Receipt Date: 20191017
  Transmission Date: 20200122
  Serious: No
  Sender: FDA-Public Use
  Company Number: US-THERATECHNOLOGIES, INC.-TH-2019-00143

PATIENT

DRUGS (2)
  1. VICTOZA [Concomitant]
     Active Substance: LIRAGLUTIDE
     Dosage: UNK
  2. EGRIFTA [Suspect]
     Active Substance: TESAMORELIN

REACTIONS (2)
  - Feeling abnormal [Unknown]
  - Fatigue [Unknown]
